FAERS Safety Report 11170051 (Version 1)
Quarter: 2015Q2

REPORT INFORMATION
  Report Type: Spontaneous
  Country: CA (occurrence: CA)
  Receive Date: 20150608
  Receipt Date: 20150608
  Transmission Date: 20150821
  Serious: Yes (Other)
  Sender: FDA-Public Use
  Company Number: CA-ROCHE-1588758

PATIENT
  Age: 59 Year
  Sex: Male

DRUGS (12)
  1. CYCLOSPORIN [Concomitant]
     Active Substance: CYCLOSPORINE
  2. XOLAIR [Suspect]
     Active Substance: OMALIZUMAB
     Indication: ASTHMA
     Route: 058
     Dates: start: 20140814
  3. HYDROXYZINE [Concomitant]
     Active Substance: HYDROXYZINE\HYDROXYZINE HYDROCHLORIDE
  4. ADVAIR HFA [Concomitant]
     Active Substance: FLUTICASONE PROPIONATE\SALMETEROL XINAFOATE
  5. RIVAROXABAN [Concomitant]
     Active Substance: RIVAROXABAN
  6. SYMBICORT [Concomitant]
     Active Substance: BUDESONIDE\FORMOTEROL FUMARATE DIHYDRATE
  7. XOLAIR [Suspect]
     Active Substance: OMALIZUMAB
     Route: 058
     Dates: start: 20141209
  8. CELLCEPT [Concomitant]
     Active Substance: MYCOPHENOLATE MOFETIL\MYCOPHENOLATE MOFETIL HYDROCHLORIDE
     Route: 065
  9. XOLAIR [Suspect]
     Active Substance: OMALIZUMAB
     Route: 058
     Dates: start: 20150120
  10. PROTOPIC [Concomitant]
     Active Substance: TACROLIMUS
  11. CLOBETASOL [Concomitant]
     Active Substance: CLOBETASOL
  12. PREDNISONE. [Concomitant]
     Active Substance: PREDNISONE

REACTIONS (6)
  - Crying [Unknown]
  - General physical health deterioration [Unknown]
  - Ocular hyperaemia [Unknown]
  - Skin disorder [Unknown]
  - Blood pressure increased [Unknown]
  - Eye oedema [Unknown]

NARRATIVE: CASE EVENT DATE: 20141209
